FAERS Safety Report 4360286-9 (Version None)
Quarter: 2004Q2

REPORT INFORMATION
  Report Type: 
  Country: None (occurrence: None)
  Receive Date: 20040518
  Receipt Date: 20040518
  Transmission Date: 20050107
  Serious: Yes (Life-Threatening)
  Sender: FDA-Public Use
  Company Number: None

PATIENT
  Sex: Female

DRUGS (7)
  1. METHOTREXATE [Suspect]
     Indication: RHEUMATOID ARTHRITIS
     Dosage: 15 MG/6TAB Q 7D
  2. DAYPRO [Concomitant]
  3. FOLIC ACID [Concomitant]
  4. MAXZIDE [Concomitant]
  5. LIPITOR [Concomitant]
  6. FLEXERIL [Concomitant]
  7. SYNTHROID [Concomitant]

REACTIONS (5)
  - DRUG TOXICITY [None]
  - INTERSTITIAL LUNG DISEASE [None]
  - PULMONARY FIBROSIS [None]
  - PULMONARY HYPERTENSION [None]
  - RHEUMATOID ARTHRITIS [None]
